FAERS Safety Report 5877124-5 (Version None)
Quarter: 2008Q3

REPORT INFORMATION
  Report Type: 
  Country: None (occurrence: None)
  Receive Date: 20080910
  Receipt Date: 20080902
  Transmission Date: 20090109
  Serious: Yes (Other)
  Sender: FDA-Public Use
  Company Number: DE-PFIZER INC-2008028717

PATIENT
  Sex: Male
  Weight: 80 kg

DRUGS (2)
  1. AZULFIDINE EN-TABS [Suspect]
     Indication: PSORIATIC ARTHROPATHY
     Dosage: DAILY DOSE:2GRAM
     Route: 048
     Dates: start: 20071101
  2. CORTISONE [Concomitant]
     Dosage: DAILY DOSE:5MG
     Dates: end: 20080501

REACTIONS (1)
  - POLYNEUROPATHY [None]
